FAERS Safety Report 7032480-X (Version None)
Quarter: 2010Q4

REPORT INFORMATION
  Report Type: 
  Country: None (occurrence: None)
  Receive Date: 20101007
  Receipt Date: 20100929
  Transmission Date: 20110411
  Serious: Yes (Other)
  Sender: FDA-Public Use
  Company Number: AT-BAXTER-2010BH024729

PATIENT
  Age: 65 Year
  Sex: Male
  Weight: 61 kg

DRUGS (8)
  1. GAMMAGARD LIQUID [Suspect]
     Indication: MULTIPLE MYELOMA
     Route: 065
     Dates: start: 20100929, end: 20100929
  2. GAMMAGARD LIQUID [Suspect]
     Route: 065
  3. NORVASC [Concomitant]
     Route: 048
  4. TRAZODONE HCL [Concomitant]
     Route: 048
  5. PANTOPRAZOLE SODIUM [Concomitant]
     Route: 048
  6. CIPRALEX /DEN/ [Concomitant]
     Route: 048
  7. NULYTELY [Concomitant]
     Route: 048
  8. TEMESTA [Concomitant]
     Route: 048

REACTIONS (1)
  - ANAPHYLACTOID REACTION [None]
